FAERS Safety Report 19313636 (Version 1)
Quarter: 2021Q2

REPORT INFORMATION
  Report Type: Report from Study
  Country: US (occurrence: US)
  Receive Date: 20210527
  Receipt Date: 20210527
  Transmission Date: 20210717
  Serious: Yes (Other)
  Sender: FDA-Public Use
  Company Number: US-JNJFOC-20210548232

PATIENT
  Age: 76 Year
  Sex: Female
  Weight: 53.2 kg

DRUGS (4)
  1. AMBRISENTAN [Concomitant]
     Active Substance: AMBRISENTAN
     Route: 065
  2. REVATIO [Concomitant]
     Active Substance: SILDENAFIL CITRATE
     Route: 065
  3. SELEXIPAG [Suspect]
     Active Substance: SELEXIPAG
     Indication: PULMONARY HYPERTENSION
     Route: 048
  4. WARFARIN [Concomitant]
     Active Substance: WARFARIN
     Route: 065

REACTIONS (7)
  - Epistaxis [Unknown]
  - Sinus congestion [Unknown]
  - Pain [Unknown]
  - Cough [Unknown]
  - Blood potassium decreased [Unknown]
  - Anaemia [Unknown]
  - Nasal congestion [Unknown]

NARRATIVE: CASE EVENT DATE: 202105
